FAERS Safety Report 9190398 (Version 2)
Quarter: 2012Q4

REPORT INFORMATION
  Report Type: 
  Country: US (occurrence: US)
  Receive Date: 20121217
  Receipt Date: 20121219
  Transmission Date: 20130627
  Serious: Yes (Other)
  Sender: FDA-Public Use
  Company Number: US-RB-047603-12

PATIENT
  Age: 65 Year
  Sex: Female

DRUGS (10)
  1. MUCINEX UNKNOWN TYPE [Suspect]
     Indication: FIBROMYALGIA
     Dosage: Patient took product for over 9 months.
  2. MUCINEX UNKNOWN TYPE [Suspect]
     Indication: FIBROMYALGIA
     Dosage: Patient took product for over 9 months.
  3. CELEBREX [Concomitant]
     Indication: PRODUCT USED FOR UNKNOWN INDICATION
  4. RANITIDINE [Concomitant]
     Indication: GASTRIC DISORDER
  5. HYDROCODONE [Concomitant]
     Indication: BACK PAIN
  6. TRAMADOL [Concomitant]
     Indication: BACK PAIN
  7. METFORMIN [Concomitant]
     Indication: DIABETES MELLITUS
  8. TOPAMAX [Concomitant]
     Indication: CONVULSION
  9. ALORA PATCH [Concomitant]
     Indication: OVARIAN CANCER STAGE IV
     Route: 062
  10. SUDAFED [Concomitant]
     Indication: PRODUCT USED FOR UNKNOWN INDICATION

REACTIONS (3)
  - Haemoptysis [Recovering/Resolving]
  - Off label use [Recovering/Resolving]
  - Incorrect drug administration duration [Recovering/Resolving]
